FAERS Safety Report 4586856-0 (Version None)
Quarter: 2005Q1

REPORT INFORMATION
  Report Type: 
  Country: None (occurrence: None)
  Receive Date: 20050217
  Receipt Date: 20050217
  Transmission Date: 20050727
  Serious: Yes (Hospitalization)
  Sender: FDA-Public Use
  Company Number: None

PATIENT
  Age: 13 Year
  Sex: Male
  Weight: 45.3597 kg

DRUGS (3)
  1. COMPAZINE [Suspect]
     Indication: NAUSEA
     Dosage: 10 MG   EVERY 6 HOURS   INTRAVENOU
     Route: 042
     Dates: start: 20050125, end: 20050126
  2. BENADRYL [Concomitant]
  3. VALIUM [Concomitant]

REACTIONS (7)
  - CONTRAINDICATION TO MEDICAL TREATMENT [None]
  - CONVULSION [None]
  - DROOLING [None]
  - DYSTONIA [None]
  - MEDICATION ERROR [None]
  - SPEECH DISORDER [None]
  - TONGUE DISORDER [None]
